FAERS Safety Report 9496000 (Version 1)
Quarter: 2013Q3

REPORT INFORMATION
  Report Type: Spontaneous
  Country: US (occurrence: US)
  Receive Date: 20130904
  Receipt Date: 20130904
  Transmission Date: 20140515
  Serious: No
  Sender: FDA-Public Use
  Company Number: US-BIOGENIDEC-2013BI078211

PATIENT
  Age: 58 Year
  Sex: Male

DRUGS (2)
  1. AVONEX [Suspect]
     Indication: MULTIPLE SCLEROSIS
     Route: 030
     Dates: start: 20061101, end: 201304
  2. AVONEX [Suspect]
     Indication: MULTIPLE SCLEROSIS
     Route: 030
     Dates: start: 201304

REACTIONS (12)
  - Injury associated with device [Recovered/Resolved]
  - Haemorrhage [Recovered/Resolved]
  - Contusion [Not Recovered/Not Resolved]
  - Balance disorder [Not Recovered/Not Resolved]
  - Influenza [Recovered/Resolved]
  - Underdose [Not Recovered/Not Resolved]
  - Injection site haemorrhage [Recovered/Resolved]
  - Malaise [Recovered/Resolved]
  - Fatigue [Recovered/Resolved]
  - Pain in extremity [Not Recovered/Not Resolved]
  - Injection site pain [Unknown]
  - Muscular weakness [Not Recovered/Not Resolved]
